FAERS Safety Report 9713386 (Version 1)
Quarter: 2013Q4

REPORT INFORMATION
  Report Type: Spontaneous
  Country: FR (occurrence: FR)
  Receive Date: 20131126
  Receipt Date: 20131126
  Transmission Date: 20140711
  Serious: Yes (Hospitalization)
  Sender: FDA-Public Use
  Company Number: FR-SA-2013SA121590

PATIENT
  Age: 68 Year
  Sex: Male

DRUGS (8)
  1. PERINDOPRIL [Suspect]
     Indication: ISCHAEMIC STROKE
     Route: 048
     Dates: start: 20131015, end: 20131021
  2. LOVENOX [Suspect]
     Indication: THROMBOSIS PROPHYLAXIS
     Route: 058
     Dates: start: 20131003
  3. KARDEGIC [Suspect]
     Indication: ISCHAEMIC STROKE
     Route: 048
     Dates: start: 20131014
  4. BACTRIM [Suspect]
     Indication: BACTERIAL PYELONEPHRITIS
     Route: 042
     Dates: start: 20131011, end: 20131024
  5. TAHOR [Suspect]
     Indication: ISCHAEMIC STROKE
     Route: 048
     Dates: start: 20131014
  6. LYRICA [Suspect]
     Indication: NEUROPATHY PERIPHERAL
     Route: 048
     Dates: start: 20131014
  7. PERFALGAN [Suspect]
     Indication: PRODUCT USED FOR UNKNOWN INDICATION
     Dosage: DOSE- 1 DF
     Route: 042
     Dates: start: 20131009
  8. TOBREX [Suspect]
     Indication: PRODUCT USED FOR UNKNOWN INDICATION
     Route: 047
     Dates: start: 20131017

REACTIONS (5)
  - Drug reaction with eosinophilia and systemic symptoms [Unknown]
  - Pyrexia [Unknown]
  - Eosinophilia [Unknown]
  - Rash morbilliform [Unknown]
  - Hepatocellular injury [Unknown]
